FAERS Safety Report 8602367-7 (Version None)
Quarter: 2012Q3

REPORT INFORMATION
  Report Type: 
  Country: None (occurrence: None)
  Receive Date: 20120817
  Receipt Date: 20120112
  Transmission Date: 20120928
  Serious: Yes (Hospitalization, Other)
  Sender: FDA-Public Use
  Company Number: US-ROCHE-1100731

PATIENT
  Sex: Male

DRUGS (2)
  1. ASPIRIN [Concomitant]
  2. ACTIVASE [Suspect]
     Indication: MYOCARDIAL INFARCTION

REACTIONS (7)
  - DYSPNOEA [None]
  - CHEST PAIN [None]
  - ABDOMINAL DISCOMFORT [None]
  - ABDOMINAL DISTENSION [None]
  - APHASIA [None]
  - NAUSEA [None]
  - HAEMORRHAGE INTRACRANIAL [None]
